FAERS Safety Report 25861292 (Version 1)
Quarter: 2025Q3

REPORT INFORMATION
  Report Type: Spontaneous
  Country: US (occurrence: US)
  Receive Date: 20250929
  Receipt Date: 20250929
  Transmission Date: 20251020
  Serious: No
  Sender: TEVA
  Company Number: US-TEVA-VS-3373577

PATIENT
  Age: 65 Year
  Sex: Male

DRUGS (1)
  1. AUSTEDO XR [Suspect]
     Active Substance: DEUTETRABENAZINE
     Indication: Tardive dyskinesia
     Route: 065

REACTIONS (5)
  - Insomnia [Unknown]
  - Sleep disorder [Unknown]
  - Paraesthesia [Unknown]
  - Thirst [Unknown]
  - Dry mouth [Unknown]
